FAERS Safety Report 16653354 (Version 1)
Quarter: 2019Q3

REPORT INFORMATION
  Report Type: Spontaneous
  Country: US (occurrence: US)
  Receive Date: 20190731
  Receipt Date: 20190731
  Transmission Date: 20191004
  Serious: No
  Sender: FDA-Public Use
  Company Number: US-MYLANLABS-2019M1067134

PATIENT
  Sex: Female
  Weight: 64 kg

DRUGS (2)
  1. FLURAZEPAM HYDROCHLORIDE CAPSULES, USP [Suspect]
     Active Substance: FLURAZEPAM HYDROCHLORIDE
     Indication: PRODUCT USED FOR UNKNOWN INDICATION
     Dosage: UNK
     Route: 048
  2. FLURAZEPAM HYDROCHLORIDE CAPSULES, USP [Suspect]
     Active Substance: FLURAZEPAM HYDROCHLORIDE
     Dosage: UNK
     Route: 048
     Dates: start: 2019, end: 2019

REACTIONS (2)
  - Diarrhoea [Recovered/Resolved]
  - Visual impairment [Recovered/Resolved]

NARRATIVE: CASE EVENT DATE: 2019
